FAERS Safety Report 11968689 (Version 1)
Quarter: 2016Q1

REPORT INFORMATION
  Report Type: Spontaneous
  Country: US (occurrence: US)
  Receive Date: 20160128
  Receipt Date: 20160128
  Transmission Date: 20160526
  Serious: No
  Sender: FDA-Public Use
  Company Number: US-ZYDUS-009594

PATIENT
  Age: 25 Year
  Sex: Female

DRUGS (4)
  1. RIBAVIRIN. [Suspect]
     Active Substance: RIBAVIRIN
     Indication: HEPATITIS C
     Dosage: 600-1000 MG DAILY
     Route: 048
     Dates: start: 20140904, end: 20150119
  2. SIMEPREVIR [Concomitant]
     Active Substance: SIMEPREVIR
     Indication: HEPATITIS C
     Dates: start: 20140821, end: 20150202
  3. SOFOSBUVIR [Concomitant]
     Active Substance: SOFOSBUVIR
     Indication: HEPATITIS C
     Dates: start: 20140821, end: 20150202
  4. NICOTINE. [Concomitant]
     Active Substance: NICOTINE
     Dates: start: 20110312, end: 20150319

REACTIONS (2)
  - Pruritus [Unknown]
  - Cholestasis [Unknown]

NARRATIVE: CASE EVENT DATE: 20151008
